FAERS Safety Report 7568880-9 (Version None)
Quarter: 2011Q2

REPORT INFORMATION
  Report Type: 
  Country: None (occurrence: None)
  Receive Date: 20110623
  Receipt Date: 20110620
  Transmission Date: 20111010
  Serious: No
  Sender: FDA-Public Use
  Company Number: US-TEVA-287451USA

PATIENT
  Sex: Female

DRUGS (2)
  1. PLAN B ONE-STEP [Suspect]
     Dosage: 1.5 MILLIGRAM;
     Route: 048
     Dates: start: 20110619, end: 20110619
  2. PLAN B ONE-STEP [Suspect]
     Indication: POST COITAL CONTRACEPTION
     Dosage: 1.5 MILLIGRAM;
     Route: 048
     Dates: start: 20110612, end: 20110612

REACTIONS (11)
  - BACK PAIN [None]
  - URINARY TRACT DISORDER [None]
  - DISTURBANCE IN ATTENTION [None]
  - NAUSEA [None]
  - MENSTRUATION IRREGULAR [None]
  - PELVIC PAIN [None]
  - BLADDER PAIN [None]
  - FEELING ABNORMAL [None]
  - URINARY TRACT INFECTION [None]
  - CONFUSIONAL STATE [None]
  - DYSURIA [None]
